FAERS Safety Report 13674405 (Version 2)
Quarter: 2017Q3

REPORT INFORMATION
  Report Type: Spontaneous
  Country: FR (occurrence: FR)
  Receive Date: 20170621
  Receipt Date: 20170807
  Transmission Date: 20171127
  Serious: Yes (Other)
  Sender: FDA-Public Use
  Company Number: FR-BAYER-2017-117795

PATIENT
  Age: 39 Year
  Sex: Female

DRUGS (1)
  1. MIRENA [Suspect]
     Active Substance: LEVONORGESTREL
     Dosage: 20 MCG/24HR, CONT
     Route: 015
     Dates: start: 20120709, end: 20170609

REACTIONS (4)
  - Weight increased [Recovering/Resolving]
  - Libido decreased [Recovering/Resolving]
  - Hair growth abnormal [Recovering/Resolving]
  - Irritability [Recovering/Resolving]
